FAERS Safety Report 7284153-6 (Version None)
Quarter: 2011Q1

REPORT INFORMATION
  Report Type: 
  Country: None (occurrence: None)
  Receive Date: 20110209
  Receipt Date: 20110202
  Transmission Date: 20110831
  Serious: Yes (Hospitalization)
  Sender: FDA-Public Use
  Company Number: US-US-EMD SERONO, INC.-7039619

PATIENT
  Sex: Female
  Weight: 64 kg

DRUGS (5)
  1. UNSPECIFIED BLOOD PRESSURE MEDICATION [Concomitant]
     Indication: HYPERTENSION
  2. REBIF [Suspect]
     Indication: MULTIPLE SCLEROSIS
     Route: 058
     Dates: start: 20100802
  3. PROVIGIL [Concomitant]
     Indication: FATIGUE
  4. LIPITOR [Concomitant]
     Indication: BLOOD CHOLESTEROL INCREASED
  5. UNSPECIFIED THYROID MEDICATION [Concomitant]
     Indication: HYPOTHYROIDISM

REACTIONS (3)
  - PALPITATIONS [None]
  - LIVER FUNCTION TEST ABNORMAL [None]
  - DYSPNOEA [None]
